FAERS Safety Report 7354659-X (Version None)
Quarter: 2011Q1

REPORT INFORMATION
  Report Type: 
  Country: None (occurrence: None)
  Receive Date: 20110316
  Receipt Date: 20110310
  Transmission Date: 20110831
  Serious: No
  Sender: FDA-Public Use
  Company Number: US-PFIZER INC-2011053687

PATIENT
  Sex: Female
  Weight: 77.098 kg

DRUGS (5)
  1. XALATAN [Suspect]
     Indication: INTRAOCULAR PRESSURE INCREASED
  2. XALATAN [Suspect]
     Indication: GLAUCOMA
     Dosage: UNK
     Route: 047
     Dates: start: 20090401
  3. AZOPT [Suspect]
     Indication: GLAUCOMA
     Dosage: UNK, 2X/DAY
     Route: 047
     Dates: start: 20110101, end: 20110308
  4. AZOPT [Suspect]
     Indication: INTRAOCULAR PRESSURE INCREASED
  5. LEVOTHYROXINE [Concomitant]
     Indication: HYPOTHYROIDISM
     Dosage: UNK

REACTIONS (7)
  - OCULAR HYPERAEMIA [None]
  - LACRIMATION INCREASED [None]
  - EYE PRURITUS [None]
  - EYE IRRITATION [None]
  - BONE DENSITY DECREASED [None]
  - SKIN DISCOLOURATION [None]
  - EYELID OEDEMA [None]
